FAERS Safety Report 4615526-5 (Version None)
Quarter: 2005Q1

REPORT INFORMATION
  Report Type: 
  Country: None (occurrence: None)
  Receive Date: 20050317
  Receipt Date: 20050304
  Transmission Date: 20050727
  Serious: Yes (Hospitalization)
  Sender: FDA-Public Use
  Company Number: 2005041562

PATIENT
  Age: 29 Year
  Sex: Male
  Weight: 83.0083 kg

DRUGS (8)
  1. VIAGRA [Suspect]
     Indication: ERECTILE DYSFUNCTION
     Dosage: (100 MG), ORAL
     Route: 048
     Dates: start: 19980101
  2. TADALAFIL (TADALAFIL) [Suspect]
     Indication: ERECTILE DYSFUNCTION
  3. OXYCODONE (OXYCODONE) [Concomitant]
  4. VICODIN [Concomitant]
  5. CARISOPRODOL [Concomitant]
  6. CYCLOBENZAPRINE HYDROCHLORIDE [Concomitant]
  7. TEMAZEPAM [Concomitant]
  8. ALPRAZOLAM [Concomitant]

REACTIONS (7)
  - DRUG INEFFECTIVE [None]
  - HANGOVER [None]
  - HEADACHE [None]
  - INFLUENZA [None]
  - NASAL CONGESTION [None]
  - NASOPHARYNGITIS [None]
  - NAUSEA [None]
